FAERS Safety Report 8933676 (Version 1)
Quarter: 2012Q4

REPORT INFORMATION
  Report Type: 
  Country: FR (occurrence: FR)
  Receive Date: 20121129
  Receipt Date: 20121129
  Transmission Date: 20130627
  Serious: Yes (Hospitalization)
  Sender: FDA-Public Use
  Company Number: FR-ASTRAZENECA-2012SE89168

PATIENT
  Age: 23042 Day
  Sex: Male

DRUGS (9)
  1. XEROQUEL [Suspect]
     Indication: DEPRESSION
     Route: 048
     Dates: start: 201207, end: 20120912
  2. VENLAFAXINE LP [Suspect]
     Indication: DEPRESSION
     Route: 048
     Dates: end: 201209
  3. ARTANE [Suspect]
     Indication: DEPRESSION
     Route: 048
     Dates: end: 201209
  4. LAMOTRIGINE [Concomitant]
  5. TRILEPTAL [Concomitant]
  6. TAHOR [Concomitant]
  7. URBANYL [Concomitant]
     Indication: DEPRESSION
  8. SULFARLEM [Concomitant]
  9. FORLAX [Concomitant]

REACTIONS (3)
  - Rash erythematous [Recovered/Resolved]
  - Pneumonia aspiration [Unknown]
  - Neuroleptic malignant syndrome [Recovered/Resolved]
